FAERS Safety Report 20015677 (Version 1)
Quarter: 2021Q4

REPORT INFORMATION
  Report Type: Spontaneous
  Country: US (occurrence: None)
  Receive Date: 20211101
  Receipt Date: 20211101
  Transmission Date: 20220303
  Serious: Yes (Life-Threatening, Hospitalization)
  Sender: FDA-Public Use
  Company Number: None

PATIENT
  Age: 19 Year
  Sex: Female
  Weight: 58.5 kg

DRUGS (7)
  1. NURTEC ODT [Suspect]
     Active Substance: RIMEGEPANT SULFATE
     Indication: Migraine
     Dosage: OTHER QUANTITY : 1 TABLET(S);?FREQUENCY : DAILY;?
     Route: 060
     Dates: start: 20210929, end: 20210929
  2. SINGULAIR [Concomitant]
     Active Substance: MONTELUKAST SODIUM
  3. ALBUTEROL [Concomitant]
     Active Substance: ALBUTEROL
  4. ADVAIR HFA [Concomitant]
     Active Substance: FLUTICASONE PROPIONATE\SALMETEROL XINAFOATE
  5. EXCEDERIN [Concomitant]
  6. ADVIL [Concomitant]
     Active Substance: IBUPROFEN
  7. TYLENOL [Concomitant]
     Active Substance: ACETAMINOPHEN

REACTIONS (8)
  - Chest pain [None]
  - Rash [None]
  - Urticaria [None]
  - Pharyngeal swelling [None]
  - Swelling face [None]
  - Hypoaesthesia oral [None]
  - Paraesthesia oral [None]
  - Dyspnoea [None]

NARRATIVE: CASE EVENT DATE: 20210929
